FAERS Safety Report 6841568-5 (Version None)
Quarter: 2010Q3

REPORT INFORMATION
  Report Type: 
  Country: None (occurrence: None)
  Receive Date: 20100714
  Receipt Date: 20070708
  Transmission Date: 20110219
  Serious: No
  Sender: FDA-Public Use
  Company Number: US-PFIZER INC-2007056411

PATIENT
  Sex: Female
  Weight: 95.5 kg

DRUGS (11)
  1. CHANTIX [Suspect]
     Indication: SMOKING CESSATION THERAPY
     Dates: start: 20070705
  2. FLONASE [Concomitant]
  3. ZOLOFT [Concomitant]
  4. ADVAIR DISKUS 100/50 [Concomitant]
  5. CARDENE [Concomitant]
  6. AVALIDE [Concomitant]
  7. METFORMIN HCL [Concomitant]
  8. CHOLESTEROL- AND TRIGLYCERIDE REDUCERS [Concomitant]
  9. TOPROL-XL [Concomitant]
  10. IBUPROFEN [Concomitant]
  11. COMBIVENT [Concomitant]

REACTIONS (5)
  - ANXIETY [None]
  - COUGH [None]
  - DIZZINESS [None]
  - DYSPNOEA [None]
  - LOWER RESPIRATORY TRACT INFECTION [None]
